FAERS Safety Report 14611239 (Version 3)
Quarter: 2019Q2

REPORT INFORMATION
  Report Type: Spontaneous
  Country: US (occurrence: US)
  Receive Date: 20180308
  Receipt Date: 20190531
  Transmission Date: 20190711
  Serious: Yes (Other)
  Sender: FDA-Public Use
  Company Number: US-ASTRAZENECA-2018SE27904

PATIENT
  Sex: Female
  Weight: 90.7 kg

DRUGS (47)
  1. NEXIUM [Suspect]
     Active Substance: ESOMEPRAZOLE MAGNESIUM
     Indication: DYSPEPSIA
     Route: 048
     Dates: start: 2013, end: 2016
  2. PRILOSEC [Suspect]
     Active Substance: OMEPRAZOLE MAGNESIUM
     Indication: DYSPEPSIA
     Dosage: GENERIC
     Route: 065
     Dates: start: 2013, end: 2016
  3. AMOXICILLIN. [Concomitant]
     Active Substance: AMOXICILLIN
     Indication: INFECTION
     Route: 065
     Dates: start: 2010, end: 2015
  4. LOSARTAN. [Concomitant]
     Active Substance: LOSARTAN
     Indication: HYPERTENSION
     Route: 065
     Dates: start: 2013, end: 2016
  5. LEVSIN [Concomitant]
     Active Substance: HYOSCYAMINE SULFATE
     Dosage: EVERY 6-8 HOURS
     Route: 065
     Dates: start: 20091212
  6. FLONASE [Concomitant]
     Active Substance: FLUTICASONE PROPIONATE
     Dosage: 0.05 MG/INH (SPRAY)
     Route: 065
     Dates: start: 20130627
  7. HYZAAR [Concomitant]
     Active Substance: HYDROCHLOROTHIAZIDE\LOSARTAN POTASSIUM
     Dosage: 12.5 MG-50MG
     Route: 065
     Dates: start: 20141217
  8. PROPRANOLOL [Concomitant]
     Active Substance: PROPRANOLOL HYDROCHLORIDE
  9. ADVAIR HFA [Concomitant]
     Active Substance: FLUTICASONE PROPIONATE\SALMETEROL XINAFOATE
     Indication: ASTHMA
     Route: 065
     Dates: start: 20060804, end: 2016
  10. NIFEDIPINE. [Concomitant]
     Active Substance: NIFEDIPINE
     Indication: HYPERTENSION
     Route: 065
     Dates: start: 2011, end: 2013
  11. IBUPROFEN. [Concomitant]
     Active Substance: IBUPROFEN
     Indication: PAIN
     Route: 065
     Dates: start: 2010, end: 2013
  12. BIAXIN [Concomitant]
     Active Substance: CLARITHROMYCIN
     Route: 048
     Dates: start: 20071227
  13. WARFARIN SODIUM. [Concomitant]
     Active Substance: WARFARIN SODIUM
     Route: 065
     Dates: start: 20160318
  14. LORATADINE. [Concomitant]
     Active Substance: LORATADINE
     Indication: HYPERSENSITIVITY
     Route: 048
     Dates: start: 20070102, end: 2015
  15. CIPRO [Concomitant]
     Active Substance: CIPROFLOXACIN HYDROCHLORIDE
     Route: 048
     Dates: start: 20060208
  16. VALTREX [Concomitant]
     Active Substance: VALACYCLOVIR HYDROCHLORIDE
     Route: 048
     Dates: start: 20091117
  17. HYDROCHLOROTHIAZIDE. [Concomitant]
     Active Substance: HYDROCHLOROTHIAZIDE
     Route: 048
     Dates: start: 20130207
  18. PRILOSEC [Suspect]
     Active Substance: OMEPRAZOLE MAGNESIUM
     Indication: DYSPEPSIA
     Route: 048
     Dates: start: 2013, end: 2016
  19. PRILOSEC [Suspect]
     Active Substance: OMEPRAZOLE MAGNESIUM
     Indication: DYSPEPSIA
     Dosage: GENERIC
     Route: 065
     Dates: start: 20131115
  20. PRILOSEC [Suspect]
     Active Substance: OMEPRAZOLE MAGNESIUM
     Indication: DYSPEPSIA
     Dosage: 20 MG GENERIC
     Route: 065
     Dates: start: 2013, end: 2014
  21. PANTOPRAZOLE [Suspect]
     Active Substance: PANTOPRAZOLE
     Indication: DYSPEPSIA
     Route: 065
     Dates: start: 20160409
  22. FLUTICASONE. [Concomitant]
     Active Substance: FLUTICASONE
     Indication: PAIN
     Route: 065
     Dates: start: 2012, end: 2016
  23. MEFENAMIC ACID. [Concomitant]
     Active Substance: MEFENAMIC ACID
     Route: 048
     Dates: start: 20080513
  24. NEXIUM [Suspect]
     Active Substance: ESOMEPRAZOLE MAGNESIUM
     Indication: DYSPEPSIA
     Route: 048
     Dates: start: 2014, end: 2015
  25. PROMETHAZINE [Concomitant]
     Active Substance: PROMETHAZINE\PROMETHAZINE HYDROCHLORIDE
     Indication: PAIN
     Route: 065
     Dates: start: 2011, end: 2016
  26. ZANTAC [Concomitant]
     Active Substance: RANITIDINE HYDROCHLORIDE
     Route: 065
     Dates: start: 2013
  27. ZITHROMAX [Concomitant]
     Active Substance: AZITHROMYCIN DIHYDRATE
     Route: 048
     Dates: start: 20080207
  28. PRILOSEC [Suspect]
     Active Substance: OMEPRAZOLE MAGNESIUM
     Indication: DYSPEPSIA
     Dosage: 20 MG GENERIC
     Route: 065
     Dates: start: 2016
  29. PANTOPRAZOLE [Suspect]
     Active Substance: PANTOPRAZOLE
     Indication: DYSPEPSIA
     Dosage: GENERIC
     Route: 065
     Dates: start: 2016
  30. ALBUTEROL. [Concomitant]
     Active Substance: ALBUTEROL
     Indication: COUGH
     Route: 065
     Dates: start: 2006, end: 2014
  31. FLUTICASONE. [Concomitant]
     Active Substance: FLUTICASONE
     Indication: COUGH
     Route: 065
     Dates: start: 2012, end: 2016
  32. NAPROXEN. [Concomitant]
     Active Substance: NAPROXEN
     Indication: PAIN
     Route: 065
     Dates: start: 2010
  33. TYLENOL [Concomitant]
     Active Substance: ACETAMINOPHEN
     Indication: PAIN
     Dosage: EVERY 6-8 HOURS
     Route: 065
     Dates: start: 20060415
  34. NEXIUM [Suspect]
     Active Substance: ESOMEPRAZOLE MAGNESIUM
     Indication: DYSPEPSIA
     Route: 048
     Dates: start: 20140515
  35. CEPHALEXIN. [Concomitant]
     Active Substance: CEPHALEXIN
     Indication: INFECTION
     Route: 065
     Dates: start: 2011, end: 2015
  36. VITAMIN D [Concomitant]
     Active Substance: VITAMIN D NOS
     Indication: ROUTINE HEALTH MAINTENANCE
     Route: 065
     Dates: start: 2015, end: 2016
  37. METRONIDAZOLE. [Concomitant]
     Active Substance: METRONIDAZOLE
     Route: 048
     Dates: start: 20051201
  38. PHENTERMINE. [Concomitant]
     Active Substance: PHENTERMINE
     Route: 048
     Dates: start: 20070201
  39. EPINEPHRINE. [Concomitant]
     Active Substance: EPINEPHRINE
     Dosage: 0.3 MG AUTO-INJECTOR
     Route: 065
     Dates: start: 20091117
  40. LABETALOL HYDROCHLORIDE. [Concomitant]
     Active Substance: LABETALOL HYDROCHLORIDE
     Route: 065
     Dates: start: 20130108
  41. CLINDAMYCIN. [Concomitant]
     Active Substance: CLINDAMYCIN
  42. TRAMADOL. [Concomitant]
     Active Substance: TRAMADOL
     Indication: PAIN
     Route: 065
     Dates: start: 2011, end: 2016
  43. LABETALOL [Concomitant]
     Active Substance: LABETALOL\LABETALOL HYDROCHLORIDE
     Indication: BLOOD PRESSURE ABNORMAL
     Route: 065
     Dates: start: 2011, end: 2013
  44. MONTELUKAST [Concomitant]
     Active Substance: MONTELUKAST SODIUM
     Indication: COUGH
     Route: 048
     Dates: start: 20060804
  45. PRENATAL [Concomitant]
     Active Substance: VITAMINS
     Route: 065
     Dates: start: 2009, end: 2011
  46. RANITIDINE. [Concomitant]
     Active Substance: RANITIDINE
     Dosage: GENERIC
     Route: 065
     Dates: start: 2013
  47. CETIRIZINE [Concomitant]
     Active Substance: CETIRIZINE HYDROCHLORIDE
     Route: 048
     Dates: start: 20091117

REACTIONS (4)
  - Nephrogenic anaemia [Unknown]
  - Acute kidney injury [Recovered/Resolved]
  - Renal failure [Unknown]
  - Chronic kidney disease [Not Recovered/Not Resolved]
